FAERS Safety Report 20052146 (Version 1)
Quarter: 2021Q4

REPORT INFORMATION
  Report Type: Report from Study
  Country: US (occurrence: US)
  Receive Date: 20211110
  Receipt Date: 20211110
  Transmission Date: 20220303
  Serious: No
  Sender: FDA-Public Use
  Company Number: US-HORIZON THERAPEUTICS-HZN-2021-006362

PATIENT
  Sex: Female

DRUGS (2)
  1. TEPEZZA [Suspect]
     Active Substance: TEPROTUMUMAB-TRBW
     Indication: Endocrine ophthalmopathy
     Dosage: UNK
     Route: 065
     Dates: start: 20200721
  2. TEPEZZA [Suspect]
     Active Substance: TEPROTUMUMAB-TRBW
     Dosage: 8TH INFUSION
     Route: 065
     Dates: start: 20201216

REACTIONS (8)
  - Diplopia [Unknown]
  - Exophthalmos [Unknown]
  - Conjunctival oedema [Unknown]
  - Conjunctival hyperaemia [Unknown]
  - Eye inflammation [Unknown]
  - Keratitis [Unknown]
  - Eyelid retraction [Unknown]
  - Drug ineffective [Unknown]
